FAERS Safety Report 4633307-3 (Version None)
Quarter: 2005Q2

REPORT INFORMATION
  Report Type: 
  Country: None (occurrence: None)
  Receive Date: 20050412
  Receipt Date: 20050326
  Transmission Date: 20051028
  Serious: Yes (Other)
  Sender: FDA-Public Use
  Company Number: 2005042430

PATIENT
  Age: 63 Year
  Sex: Female
  Weight: 57.6068 kg

DRUGS (1)
  1. NEURONTIN [Suspect]
     Indication: CONVULSION
     Dosage: 400 MG (200 MG, 2 IN 1 D), ORAL
     Route: 048

REACTIONS (5)
  - ARTHRALGIA [None]
  - DIZZINESS [None]
  - EAR PAIN [None]
  - HEADACHE [None]
  - SPEECH DISORDER [None]
